FAERS Safety Report 15577653 (Version 1)
Quarter: 2018Q4

REPORT INFORMATION
  Report Type: Spontaneous
  Country: JP (occurrence: JP)
  Receive Date: 20181102
  Receipt Date: 20181102
  Transmission Date: 20190205
  Serious: Yes (Other)
  Sender: FDA-Public Use
  Company Number: JP-LUPIN PHARMACEUTICALS INC.-2017-07858

PATIENT
  Age: 70 Year
  Sex: Male

DRUGS (3)
  1. PREDNISOLONE. [Concomitant]
     Active Substance: PREDNISOLONE
     Indication: ANTI-NEUTROPHIL CYTOPLASMIC ANTIBODY POSITIVE VASCULITIS
     Dosage: UNK
     Route: 048
  2. CEFTRIAXONE. [Suspect]
     Active Substance: CEFTRIAXONE
     Indication: BRAIN ABSCESS
     Dosage: 4 G, QD
     Route: 042
  3. METRONIDAZOLE. [Concomitant]
     Active Substance: METRONIDAZOLE
     Indication: BRAIN ABSCESS
     Dosage: UNK
     Route: 048

REACTIONS (2)
  - Pseudocholelithiasis [Recovered/Resolved]
  - Pancreatitis acute [Recovering/Resolving]
